FAERS Safety Report 6938520-8 (Version None)
Quarter: 2010Q3

REPORT INFORMATION
  Report Type: 
  Country: None (occurrence: None)
  Receive Date: 20100824
  Receipt Date: 20100812
  Transmission Date: 20110219
  Serious: Yes (Hospitalization)
  Sender: FDA-Public Use
  Company Number: FR-JNJFOC-20100801637

PATIENT
  Sex: Male
  Weight: 77 kg

DRUGS (8)
  1. REMICADE [Suspect]
     Indication: CROHN'S DISEASE
     Route: 042
  2. REMICADE [Suspect]
     Route: 042
  3. REMICADE [Suspect]
     Route: 042
  4. REMICADE [Suspect]
     Route: 042
  5. REMICADE [Suspect]
     Route: 042
  6. CRESTOR [Concomitant]
     Indication: HYPERCHOLESTEROLAEMIA
  7. FLECAINIDE ACETATE [Concomitant]
     Indication: ARRHYTHMIA
  8. FELODIPINE [Concomitant]
     Indication: HYPERTENSION

REACTIONS (2)
  - CROHN'S DISEASE [None]
  - HERNIA [None]
